FAERS Safety Report 5321679-6 (Version None)
Quarter: 2007Q2

REPORT INFORMATION
  Report Type: 
  Country: None (occurrence: None)
  Receive Date: 20070220
  Receipt Date: 20070116
  Transmission Date: 20071010
  Serious: No
  Sender: FDA-Public Use
  Company Number: TPA2006A02065

PATIENT
  Age: 50 Year
  Sex: Female
  Weight: 58.514 kg

DRUGS (6)
  1. ROZEREM [Suspect]
     Indication: INSOMNIA
     Dosage: 8 MG, QHS, PER ORAL
     Route: 048
     Dates: start: 20061114, end: 20061115
  2. SEDICAL (ALL OTHER THERAPEUTIC PRODUCTS) [Concomitant]
  3. TOPROL-XL [Concomitant]
  4. LISINOPRIL [Concomitant]
  5. NIFEDIPINE [Concomitant]
  6. HYDROCHLOROTHIAZIDE [Concomitant]

REACTIONS (6)
  - DRUG EFFECT PROLONGED [None]
  - HALLUCINATION, VISUAL [None]
  - HEART RATE INCREASED [None]
  - MALAISE [None]
  - POOR QUALITY SLEEP [None]
  - SOMNOLENCE [None]
